FAERS Safety Report 4824115-9 (Version None)
Quarter: 2005Q4

REPORT INFORMATION
  Report Type: 
  Country: None (occurrence: None)
  Receive Date: 20051108
  Receipt Date: 20051026
  Transmission Date: 20060501
  Serious: Yes (Death, Hospitalization, Other)
  Sender: FDA-Public Use
  Company Number: US_0501111264

PATIENT
  Age: 85 Year
  Sex: Female

DRUGS (2)
  1. EVISTA [Suspect]
  2. ANTIBIOTIC [Concomitant]

REACTIONS (5)
  - JOINT SWELLING [None]
  - METASTASES TO LIVER [None]
  - METASTATIC NEOPLASM [None]
  - OEDEMA PERIPHERAL [None]
  - WEIGHT DECREASED [None]
